FAERS Safety Report 6969465-5 (Version None)
Quarter: 2010Q3

REPORT INFORMATION
  Report Type: 
  Country: None (occurrence: None)
  Receive Date: 20100907
  Receipt Date: 20100901
  Transmission Date: 20110219
  Serious: Yes (Life-Threatening, Hospitalization)
  Sender: FDA-Public Use
  Company Number: CH-AMGEN-QUU436164

PATIENT
  Age: 40 Year
  Sex: Male

DRUGS (2)
  1. ENBREL [Suspect]
     Indication: ANKYLOSING SPONDYLITIS
     Dates: start: 20081015, end: 20100707
  2. ENBREL [Suspect]
     Indication: SPONDYLOARTHROPATHY

REACTIONS (2)
  - ENCEPHALITIS [None]
  - INFECTION [None]
